FAERS Safety Report 25958122 (Version 1)
Quarter: 2025Q4

REPORT INFORMATION
  Report Type: Other
  Country: EU (occurrence: EU)
  Receive Date: 20251024
  Receipt Date: 20251024
  Transmission Date: 20260118
  Serious: Yes (Hospitalization)
  Sender: BIOCON
  Company Number: None

PATIENT

DRUGS (6)
  1. OGIVRI [Suspect]
     Active Substance: TRASTUZUMAB-DKST
     Indication: Breast cancer metastatic
     Dosage: 306 MILLIGRAM (SOLUTION FOR INJECTION)
     Route: 042
     Dates: start: 20250805, end: 20250805
  2. OGIVRI [Suspect]
     Active Substance: TRASTUZUMAB-DKST
     Dosage: 306 MILLIGRAM (SOLUTION FOR INJECTION)
     Route: 042
     Dates: start: 20250826, end: 20250826
  3. PERJETA [Suspect]
     Active Substance: PERTUZUMAB
     Indication: Breast cancer metastatic
     Dosage: 420 MILLIGRAM
     Route: 042
     Dates: start: 20250805, end: 20250805
  4. PERJETA [Suspect]
     Active Substance: PERTUZUMAB
     Dosage: 420 MILLIGRAM
     Route: 042
     Dates: start: 20250826, end: 20250826
  5. PACLITAXEL [Suspect]
     Active Substance: PACLITAXEL
     Indication: Breast cancer metastatic
     Dosage: 260 MILLIGRAM
     Route: 042
     Dates: start: 20250805, end: 20250805
  6. PACLITAXEL [Suspect]
     Active Substance: PACLITAXEL
     Dosage: 260 MILLIGRAM
     Route: 042
     Dates: start: 20250826, end: 20250826

REACTIONS (3)
  - Pulmonary oedema [Recovering/Resolving]
  - Cardiac failure acute [Recovering/Resolving]
  - Body temperature increased [Recovered/Resolved]

NARRATIVE: CASE EVENT DATE: 20250904
